FAERS Safety Report 4310862-4 (Version None)
Quarter: 2004Q1

REPORT INFORMATION
  Report Type: 
  Country: None (occurrence: None)
  Receive Date: 20040302
  Receipt Date: 20040217
  Transmission Date: 20041129
  Serious: Yes (Hospitalization)
  Sender: FDA-Public Use
  Company Number: 2004200062JP

PATIENT
  Age: 37 Year
  Sex: Female

DRUGS (3)
  1. SOLU-MEDROL [Suspect]
     Indication: EYE DISORDER
     Dosage: 1 G, QD, IV
     Route: 042
     Dates: start: 20040209, end: 20040211
  2. INDERAL [Concomitant]
  3. PREDNISOLONE [Concomitant]

REACTIONS (2)
  - DRUG HYPERSENSITIVITY [None]
  - RASH [None]
